FAERS Safety Report 6656438-5 (Version None)
Quarter: 2010Q1

REPORT INFORMATION
  Report Type: 
  Country: None (occurrence: None)
  Receive Date: 20100329
  Receipt Date: 20100318
  Transmission Date: 20100710
  Serious: Yes (Other)
  Sender: FDA-Public Use
  Company Number: US-JNJCH-2010007357

PATIENT
  Age: 62 Year
  Sex: Male
  Weight: 72.1 kg

DRUGS (1)
  1. VISINE TOTALITY MULTI-SYMPTOM RELIEF [Suspect]
     Indication: DRY EYE
     Dosage: TEXT:1 DROP PER EYE ONCE
     Route: 047
     Dates: start: 20100317, end: 20100317

REACTIONS (3)
  - APPLICATION SITE PAIN [None]
  - CONDITION AGGRAVATED [None]
  - IRITIS [None]
